FAERS Safety Report 4574422-2 (Version None)
Quarter: 2005Q1

REPORT INFORMATION
  Report Type: 
  Country: None (occurrence: None)
  Receive Date: 20050208
  Receipt Date: 20021112
  Transmission Date: 20050727
  Serious: Yes (Hospitalization, Disabling)
  Sender: FDA-Public Use
  Company Number: US-GLAXOSMITHKLINE-A0386833B

PATIENT
  Age: 38 Year
  Sex: Male
  Weight: 100 kg

DRUGS (16)
  1. CONTAC [Suspect]
     Route: 048
     Dates: end: 19990119
  2. ALKA-SELTZER COLD + SINUS [Suspect]
  3. ALKA-SELTZER PLUS NIGHT-TIME COLD MEDICINE [Suspect]
  4. HALLS MENTHO-LYPTUS COUGH DROPS [Suspect]
  5. DEXATRIM [Suspect]
  6. ROBITUSSIN CF [Suspect]
  7. TAVIST-D [Suspect]
  8. CHLOR-TRIMETON ALLERGY-SINUS [Suspect]
  9. BROMOPHEN [Suspect]
  10. DRISTAN [Suspect]
  11. CORICIDAN D COLD, FLU + SINUS [Suspect]
  12. ALKA-SELTZER PLUS COLD + COUGH [Suspect]
  13. TRIAMINIC SRT [Suspect]
  14. BC SINUS COLD (UNSPEC.)-PHENYLPROPANOLAMINE [Concomitant]
     Dates: end: 19990119
  15. DIGOXIN [Concomitant]
  16. CONTAC 12-HOUR COLD CAPSULE [Concomitant]

REACTIONS (27)
  - AMNESIA [None]
  - BLOOD PRESSURE INCREASED [None]
  - BRAIN STEM INFARCTION [None]
  - CARDIAC FAILURE CONGESTIVE [None]
  - CARDIAC FLUTTER [None]
  - CARDIOMYOPATHY [None]
  - CEREBROVASCULAR ACCIDENT [None]
  - CHEST PAIN [None]
  - DIABETES MELLITUS [None]
  - DIFFICULTY IN WALKING [None]
  - DYSARTHRIA [None]
  - DYSPNOEA [None]
  - EJECTION FRACTION DECREASED [None]
  - EMBOLIC STROKE [None]
  - FACIAL PALSY [None]
  - FATIGUE [None]
  - HEART RATE IRREGULAR [None]
  - HEMIPARESIS [None]
  - HYPERLIPIDAEMIA [None]
  - HYPOAESTHESIA [None]
  - MOTOR DYSFUNCTION [None]
  - MOVEMENT DISORDER [None]
  - MYOCARDIAL INFARCTION [None]
  - PULMONARY OEDEMA [None]
  - SPEECH DISORDER [None]
  - VENTRICULAR DYSFUNCTION [None]
  - VISUAL DISTURBANCE [None]
